FAERS Safety Report 18041741 (Version 1)
Quarter: 2020Q3

REPORT INFORMATION
  Report Type: Spontaneous
  Country: GB (occurrence: GB)
  Receive Date: 20200720
  Receipt Date: 20200720
  Transmission Date: 20201103
  Serious: Yes (Life-Threatening, Hospitalization, Disabling, Other)
  Sender: FDA-Public Use
  Company Number: GB-TEVA-2020-GB-1801322

PATIENT
  Age: 79 Year
  Sex: Female

DRUGS (25)
  1. FOLIC ACID. [Concomitant]
     Active Substance: FOLIC ACID
  2. SODIUM DIHYDROGEN PHOSPHATE [Concomitant]
     Active Substance: SODIUM PHOSPHATE
  3. POTASSIUM CHLORIDE. [Concomitant]
     Active Substance: POTASSIUM CHLORIDE
  4. PROPOFOL. [Concomitant]
     Active Substance: PROPOFOL
  5. FLUCLOXACILLIN [Concomitant]
     Active Substance: FLUCLOXACILLIN
  6. OCTENISAN [Concomitant]
  7. SUGAMMADEX [Concomitant]
     Active Substance: SUGAMMADEX
  8. POTASSIUM HYDROGEN CARBONATE [Concomitant]
  9. DEXAMETHASONE. [Concomitant]
     Active Substance: DEXAMETHASONE
  10. SODIUM CHLORIDE. [Concomitant]
     Active Substance: SODIUM CHLORIDE
  11. ONDANSETRON [Concomitant]
     Active Substance: ONDANSETRON
  12. PANTOPRAZOLE [Concomitant]
     Active Substance: PANTOPRAZOLE
  13. METARAMINOL [Concomitant]
     Active Substance: METARAMINOL
  14. LANSOPRAZOLE. [Concomitant]
     Active Substance: LANSOPRAZOLE
  15. ROCURONIUM [Concomitant]
     Active Substance: ROCURONIUM BROMIDE
  16. BUPRENORPHINE. [Concomitant]
     Active Substance: BUPRENORPHINE
     Indication: PAIN
     Dates: start: 20200620, end: 20200622
  17. MORPHINE [Concomitant]
     Active Substance: MORPHINE
  18. ENOXAPARIN [Concomitant]
     Active Substance: ENOXAPARIN
  19. LINEZOLID. [Suspect]
     Active Substance: LINEZOLID
     Indication: EMPYEMA
     Dosage: 600 MILLIGRAM
     Route: 042
     Dates: start: 20200620, end: 20200622
  20. RIFAMPICIN [Concomitant]
     Active Substance: RIFAMPIN
  21. PARACETAMOL [Concomitant]
     Active Substance: ACETAMINOPHEN
  22. MAGNESIUM SULFATE. [Concomitant]
     Active Substance: MAGNESIUM SULFATE
  23. FENTANYL. [Concomitant]
     Active Substance: FENTANYL
  24. LACTULOSE. [Concomitant]
     Active Substance: LACTULOSE
  25. CALCIUM AND COLECALCIFEROL [Concomitant]

REACTIONS (3)
  - Malaise [Unknown]
  - Angioedema [Not Recovered/Not Resolved]
  - Blood albumin decreased [Unknown]

NARRATIVE: CASE EVENT DATE: 20200622
